FAERS Safety Report 11382528 (Version 1)
Quarter: 2015Q3

REPORT INFORMATION
  Report Type: Report from Study
  Country: US (occurrence: US)
  Receive Date: 20150814
  Receipt Date: 20150814
  Transmission Date: 20151125
  Serious: Yes (Other)
  Sender: FDA-Public Use
  Company Number: PHEH2014US025958

PATIENT
  Age: 63 Year
  Sex: Male
  Weight: 51 kg

DRUGS (2)
  1. LEXAPRO [Concomitant]
     Active Substance: ESCITALOPRAM OXALATE
     Indication: DEPRESSION
     Dosage: 20 MG, QD
     Route: 048
     Dates: start: 20150213
  2. GILENYA [Suspect]
     Active Substance: FINGOLIMOD HYDROCHLORIDE
     Indication: MULTIPLE SCLEROSIS
     Dosage: 0.5 MG, QD
     Route: 048
     Dates: start: 20141223

REACTIONS (12)
  - Muscular weakness [Unknown]
  - Anosognosia [Unknown]
  - Memory impairment [Not Recovered/Not Resolved]
  - Logorrhoea [Unknown]
  - Agitation [Not Recovered/Not Resolved]
  - Coordination abnormal [Unknown]
  - Depressed mood [Unknown]
  - Heart rate decreased [Recovered/Resolved]
  - Anger [Unknown]
  - Multiple sclerosis [Unknown]
  - Insomnia [Unknown]
  - Drug ineffective [Unknown]

NARRATIVE: CASE EVENT DATE: 20141223
